FAERS Safety Report 4818956-1 (Version None)
Quarter: 2005Q4

REPORT INFORMATION
  Report Type: 
  Country: None (occurrence: None)
  Receive Date: 20051101
  Receipt Date: 20051024
  Transmission Date: 20060501
  Serious: Yes (Hospitalization)
  Sender: FDA-Public Use
  Company Number: 2005145837

PATIENT
  Age: 34 Year
  Sex: Female

DRUGS (4)
  1. LYRICA [Suspect]
     Indication: PAIN
     Dosage: 25 MG (25 MG, 1 IN 1 D), ORAL
     Route: 048
     Dates: start: 20051014, end: 20051015
  2. PANADOL FORTE (PARACETAMOL) [Concomitant]
  3. TRAMADOL HCL [Concomitant]
  4. PREDNISOLONE [Concomitant]

REACTIONS (3)
  - ORAL MUCOSAL BLISTERING [None]
  - PALMAR ERYTHEMA [None]
  - PRURITUS [None]
